FAERS Safety Report 22303229 (Version 1)
Quarter: 2023Q2

REPORT INFORMATION
  Report Type: Spontaneous
  Country: US (occurrence: US)
  Receive Date: 20230510
  Receipt Date: 20230510
  Transmission Date: 20230721
  Serious: Yes (Hospitalization)
  Sender: FDA-Public Use
  Company Number: US-Accord-271750

PATIENT
  Age: 19 Year
  Sex: Male
  Weight: 63.00 kg

DRUGS (7)
  1. ETOPOSIDE [Suspect]
     Active Substance: ETOPOSIDE
     Indication: Osteosarcoma
     Dosage: DOSE: 180 MG, CYCLICAL
     Route: 042
     Dates: start: 20210120, end: 20220122
  2. IFOSFAMIDE [Suspect]
     Active Substance: IFOSFAMIDE
     Indication: Osteosarcoma
     Dosage: 5400 MG, CYCLICAL
     Route: 042
     Dates: start: 20210120, end: 20210122
  3. FILGRASTIM [Concomitant]
     Active Substance: FILGRASTIM
     Route: 042
     Dates: start: 20210219, end: 20210224
  4. ETOPOSIDE [Suspect]
     Active Substance: ETOPOSIDE
     Indication: Osteosarcoma
     Dosage: DOSE: 180 MG, CYCLICAL
     Route: 042
     Dates: start: 20210215, end: 20220217
  5. ETOPOSIDE [Suspect]
     Active Substance: ETOPOSIDE
     Indication: Osteosarcoma
     Dosage: DOSE: 135 MG, CYCLICAL
     Route: 042
     Dates: start: 20210315, end: 20220428
  6. IFOSFAMIDE [Suspect]
     Active Substance: IFOSFAMIDE
     Indication: Osteosarcoma
     Dosage: 5400 MG, CYCLICAL
     Route: 042
     Dates: start: 20210215, end: 20210217
  7. IFOSFAMIDE [Suspect]
     Active Substance: IFOSFAMIDE
     Indication: Osteosarcoma
     Dosage: 4050 MG, CYCLICAL
     Route: 042
     Dates: start: 20210315, end: 20210428

REACTIONS (3)
  - Febrile neutropenia [Recovered/Resolved]
  - Neutrophil count decreased [Recovered/Resolved]
  - Off label use [Unknown]

NARRATIVE: CASE EVENT DATE: 20210201
